FAERS Safety Report 8346993-1 (Version None)
Quarter: 2012Q2

REPORT INFORMATION
  Report Type: 
  Country: None (occurrence: None)
  Receive Date: 20120509
  Receipt Date: 20120504
  Transmission Date: 20120825
  Serious: No
  Sender: FDA-Public Use
  Company Number: US-PFIZER INC-2012110373

PATIENT
  Sex: Female
  Weight: 118 kg

DRUGS (14)
  1. METFORMIN [Concomitant]
     Indication: DIABETES MELLITUS
     Dosage: 500 MG, 2X/DAY
     Route: 048
     Dates: start: 20030101
  2. ABILIFY [Concomitant]
     Indication: BIPOLAR DISORDER
     Dosage: 80 MG, DAILY
     Route: 048
  3. PREDNISONE [Concomitant]
     Indication: LUNG DISORDER
     Dosage: 10 MG, ALTERNATE DAY
     Route: 048
  4. TRAZODONE [Concomitant]
     Indication: BIPOLAR DISORDER
     Dosage: 100 MG, DAILY
     Route: 048
  5. SIMVASTATIN [Concomitant]
     Indication: BLOOD CHOLESTEROL ABNORMAL
     Dosage: 30 MG, DAILY
     Route: 048
     Dates: start: 20030101
  6. JANUVIA [Concomitant]
     Indication: DIABETES MELLITUS
     Dosage: 50 MG,DAILY
     Route: 048
     Dates: start: 20030101
  7. OXYBUTYNIN [Concomitant]
     Indication: DYSURIA
     Dosage: 5 MG, UNK
  8. GLYBURIDE [Concomitant]
     Indication: DIABETES MELLITUS
     Dosage: 5 MG, 2X/DAY
     Route: 048
     Dates: start: 20030101
  9. IMIPRAMINE HYDROCHLORIDE [Concomitant]
     Indication: PROPHYLAXIS
     Dosage: 25 MG, DAILY
     Route: 048
  10. TRAZODONE [Concomitant]
     Indication: SLEEP DISORDER
  11. CHANTIX [Suspect]
     Indication: SMOKING CESSATION THERAPY
     Dosage: 0.5 MG, DAILY
     Route: 048
     Dates: start: 20120502
  12. LISINOPRIL [Concomitant]
     Indication: DIABETES MELLITUS
     Dosage: 2.5 MG, DAILY
     Route: 048
     Dates: start: 20030101
  13. INSULIN [Concomitant]
     Indication: DIABETES MELLITUS
     Dosage: 25 UNITS, DAILY
     Dates: start: 20030101
  14. LAMOTRIGINE [Concomitant]
     Indication: BIPOLAR DISORDER
     Dosage: 100 MG, DAILY
     Route: 048

REACTIONS (1)
  - ABNORMAL DREAMS [None]
